FAERS Safety Report 7331868-7 (Version None)
Quarter: 2011Q1

REPORT INFORMATION
  Report Type: 
  Country: None (occurrence: None)
  Receive Date: 20110304
  Receipt Date: 20100514
  Transmission Date: 20110831
  Serious: Yes (Hospitalization)
  Sender: FDA-Public Use
  Company Number: US-PFIZER INC-2010061019

PATIENT
  Sex: Male

DRUGS (13)
  1. LAMICTAL [Suspect]
     Indication: EPILEPSY
     Dosage: 200MG AM, 400MG PM, 2X/DAY
     Route: 048
  2. VERAPAMIL [Concomitant]
  3. SIMVASTATIN [Concomitant]
  4. TRICOR [Concomitant]
  5. FOLIC ACID [Concomitant]
  6. IBUPROFEN [Concomitant]
  7. RELAFEN [Concomitant]
  8. OLANZAPINE [Concomitant]
  9. CALCIUM [Concomitant]
  10. DILANTIN [Suspect]
     Dosage: UNK
  11. KLONOPIN [Concomitant]
  12. LISINOPRIL [Concomitant]
  13. PROSCAR [Concomitant]

REACTIONS (2)
  - PANCYTOPENIA [None]
  - DIZZINESS [None]
